FAERS Safety Report 11117091 (Version 2)
Quarter: 2015Q2

REPORT INFORMATION
  Report Type: Spontaneous
  Country: US (occurrence: US)
  Receive Date: 20150515
  Receipt Date: 20150521
  Transmission Date: 20150821
  Serious: No
  Sender: FDA-Public Use
  Company Number: US-PFIZER INC-2015159115

PATIENT
  Age: 79 Year
  Sex: Female

DRUGS (1)
  1. GABAPENTIN. [Suspect]
     Active Substance: GABAPENTIN
     Indication: WEIGHT DECREASED
     Dosage: 300 MG, DAILY

REACTIONS (2)
  - Headache [Unknown]
  - Product use issue [Unknown]
